FAERS Safety Report 8115901-0 (Version None)
Quarter: 2012Q1

REPORT INFORMATION
  Report Type: 
  Country: None (occurrence: None)
  Receive Date: 20120206
  Receipt Date: 20120123
  Transmission Date: 20120608
  Serious: Yes (Life-Threatening, Hospitalization)
  Sender: FDA-Public Use
  Company Number: ES-ROCHE-768843

PATIENT
  Sex: Female
  Weight: 63.5 kg

DRUGS (27)
  1. CALCIUM/VITAMIN D [Concomitant]
  2. AZATHIOPRINE [Concomitant]
  3. LORAZEPAM [Concomitant]
  4. CITALOPRAM HYDROBROMIDE [Concomitant]
  5. PREDNISONE TAB [Concomitant]
  6. ENALAPRIL MALEATE [Concomitant]
  7. AZATHIOPRINE [Concomitant]
  8. MYCOPHENOLATE MOFETIL (CELLCEPT) [Suspect]
     Indication: ANTI-NEUTROPHIL CYTOPLASMIC ANTIBODY POSITIVE VASCULITIS
     Dosage: PREVIOUS DOSE WAS 3000 MG
     Route: 065
  9. MYCOPHENOLATE MOFETIL (CELLCEPT) [Suspect]
  10. ALENDRONATE SODIUM [Concomitant]
     Dosage: 70 MG C/ WEEK
  11. COTRIM [Concomitant]
  12. BISOPROLOL FUMARATE [Concomitant]
  13. ENOXAPARIN [Concomitant]
  14. PREDNISONE TAB [Concomitant]
  15. PRAVASTATIN [Concomitant]
  16. PREDNISONE TAB [Concomitant]
  17. PREDNISONE TAB [Concomitant]
  18. CLOPIDOGREL [Concomitant]
  19. AMLODIPINE [Concomitant]
  20. MYCOPHENOLATE MOFETIL (CELLCEPT) [Suspect]
  21. PREDNISONE TAB [Concomitant]
  22. OMEPRAZOLE [Concomitant]
  23. FUROSEMIDE [Concomitant]
  24. ASPIRIN [Concomitant]
  25. MYCOPHENOLATE MOFETIL (CELLCEPT) [Suspect]
     Dosage: CURRENT DOSE: 2000 MG
     Route: 065
  26. MYCOPHENOLATE MOFETIL (CELLCEPT) [Suspect]
  27. NITROGLYCERIN [Concomitant]

REACTIONS (5)
  - ENTEROCOCCAL INFECTION [None]
  - LUNG INFILTRATION [None]
  - URINARY TRACT INFECTION [None]
  - CYTOMEGALOVIRUS INFECTION [None]
  - PYREXIA [None]
